FAERS Safety Report 7632136-6 (Version None)
Quarter: 2011Q3

REPORT INFORMATION
  Report Type: 
  Country: None (occurrence: None)
  Receive Date: 20110725
  Receipt Date: 20110725
  Transmission Date: 20111222
  Serious: No
  Sender: FDA-Public Use
  Company Number: None

PATIENT
  Age: 42 Year
  Sex: Female
  Weight: 58.967 kg

DRUGS (1)
  1. SULFAMETHOXAZOLE AND TRIMETHOPRIM DOUBLE STRENGTH [Suspect]
     Indication: URINARY TRACT INFECTION
     Dosage: ONE TABLET
     Route: 048
     Dates: start: 20110714, end: 20110723

REACTIONS (4)
  - URTICARIA [None]
  - PARAESTHESIA [None]
  - HYPOAESTHESIA [None]
  - PAIN [None]
